FAERS Safety Report 16370474 (Version 1)
Quarter: 2019Q2

REPORT INFORMATION
  Report Type: Spontaneous
  Country: GB (occurrence: GB)
  Receive Date: 20190530
  Receipt Date: 20190530
  Transmission Date: 20190711
  Serious: Yes (Disabling)
  Sender: FDA-Public Use
  Company Number: GB-ACCORD-130087

PATIENT
  Age: 14 Year
  Sex: Male

DRUGS (12)
  1. FUROSEMIDE. [Concomitant]
     Active Substance: FUROSEMIDE
     Dosage: 50MG/5ML
     Route: 048
  2. CHLORPHENAMINE/CHLORPHENAMINE MALEATE/CHLORPHENAMINE RESINATE/CHLORPHENAMINE TANNATE [Concomitant]
     Dosage: 2MG/5ML
     Route: 048
  3. SALBUTAMOL [Concomitant]
     Active Substance: ALBUTEROL
     Dosage: PUFFS, 100MICROGRAMS/DOSE BREATH ACTUATED INHALER CFC FREE
     Route: 050
  4. PIZOTIFEN [Concomitant]
     Active Substance: PIZOTYLINE
     Route: 048
  5. DERMOL [Concomitant]
     Active Substance: BENZALKONIUM CHLORIDE\CHLORHEXIDINE HYDROCHLORIDE\ISOPROPYL MYRISTATE\PARAFFIN
     Route: 061
  6. BUCCOLAM [Concomitant]
     Active Substance: MIDAZOLAM HYDROCHLORIDE
     Dosage: 10MG/2ML
     Route: 002
  7. DALIVIT [Concomitant]
     Route: 048
  8. COMBISAL [Concomitant]
     Dosage: 125/25 MICROGRAMS PER DOSE. PUFFS.
  9. LEVETIRACETAM. [Concomitant]
     Active Substance: LEVETIRACETAM
     Dosage: 100MG/ML
     Route: 048
  10. LOSARTAN. [Concomitant]
     Active Substance: LOSARTAN
     Route: 048
  11. TOPIRAMATE. [Suspect]
     Active Substance: TOPIRAMATE
     Indication: EPILEPSY
     Route: 048
  12. SYTRON [Concomitant]
     Route: 048

REACTIONS (3)
  - Fatigue [Recovered/Resolved]
  - Feeling abnormal [Unknown]
  - Pruritus [Recovered/Resolved]
